FAERS Safety Report 7042257-7 (Version None)
Quarter: 2010Q4

REPORT INFORMATION
  Report Type: 
  Country: None (occurrence: None)
  Receive Date: 20101013
  Receipt Date: 20091109
  Transmission Date: 20110411
  Serious: No
  Sender: FDA-Public Use
  Company Number: US-ASTRAZENECA-2009SE25494

PATIENT
  Sex: Male

DRUGS (9)
  1. SYMBICORT [Suspect]
     Indication: ASTHMA
     Dosage: 160/4.5, 2 PUFFS BID
     Route: 055
     Dates: start: 20090301
  2. SYMBICORT [Suspect]
     Indication: CHRONIC OBSTRUCTIVE PULMONARY DISEASE
     Dosage: 160/4.5, 2 PUFFS BID
     Route: 055
     Dates: start: 20090301
  3. XOPENEX [Concomitant]
     Indication: ASTHMA
  4. XOPENEX [Concomitant]
     Indication: CHRONIC OBSTRUCTIVE PULMONARY DISEASE
  5. MUCOMYST [Concomitant]
     Indication: ASTHMA
  6. MUCOMYST [Concomitant]
     Indication: CHRONIC OBSTRUCTIVE PULMONARY DISEASE
  7. ADVAIR DISKUS 100/50 [Concomitant]
     Indication: ASTHMA
     Dates: end: 20090101
  8. ADVAIR DISKUS 100/50 [Concomitant]
     Indication: CHRONIC OBSTRUCTIVE PULMONARY DISEASE
     Dates: end: 20090101
  9. LOPRESSOR [Concomitant]
     Indication: ARRHYTHMIA

REACTIONS (3)
  - ARRHYTHMIA [None]
  - DYSPHONIA [None]
  - PALPITATIONS [None]
